FAERS Safety Report 18793414 (Version 1)
Quarter: 2021Q1

REPORT INFORMATION
  Report Type: Report from Study
  Country: ZA (occurrence: ZA)
  Receive Date: 20210127
  Receipt Date: 20210127
  Transmission Date: 20210419
  Serious: Yes (Death, Other)
  Sender: FDA-Public Use
  Company Number: ZA-GILEAD-2021-0514323

PATIENT
  Age: 26 Year
  Sex: Female

DRUGS (3)
  1. BLINDED EMTRICITABINE;TENOFOVIR DISOPROXIL FUMARATE [Suspect]
     Active Substance: EMTRICITABINE\TENOFOVIR DISOPROXIL FUMARATE
     Indication: PROPHYLAXIS AGAINST HIV INFECTION
     Dosage: 200/300MG, QD
     Route: 048
     Dates: start: 20181107, end: 20210110
  2. PLACEBO [Suspect]
     Active Substance: UNSPECIFIED INGREDIENT
     Indication: PROPHYLAXIS AGAINST HIV INFECTION
     Dosage: 200/300MG, QD
     Route: 048
     Dates: start: 20181107, end: 20210110
  3. BLINDED CABOTEGRAVIR [Suspect]
     Active Substance: CABOTEGRAVIR
     Indication: PROPHYLAXIS AGAINST HIV INFECTION
     Dosage: 200/300MG, QD
     Route: 048
     Dates: start: 20181107, end: 20210110

REACTIONS (1)
  - Sudden death [Fatal]
